FAERS Safety Report 22350529 (Version 3)
Quarter: 2023Q2

REPORT INFORMATION
  Report Type: Spontaneous
  Country: US (occurrence: None)
  Receive Date: 20230522
  Receipt Date: 20230613
  Transmission Date: 20230722
  Serious: No
  Sender: FDA-Public Use
  Company Number: 2023A111000

PATIENT
  Age: 25446 Day
  Sex: Female
  Weight: 83.9 kg

DRUGS (2)
  1. BYDUREON BCISE [Suspect]
     Active Substance: EXENATIDE
     Indication: Type 2 diabetes mellitus
     Route: 058
  2. BYDUREON [Concomitant]
     Active Substance: EXENATIDE
     Indication: Type 2 diabetes mellitus
     Route: 058

REACTIONS (8)
  - Incorrect dose administered by device [Unknown]
  - Blood glucose abnormal [Unknown]
  - Glycosylated haemoglobin abnormal [Unknown]
  - Arthralgia [Recovering/Resolving]
  - Thyroid disorder [Unknown]
  - Device delivery system issue [Unknown]
  - Device leakage [Unknown]
  - Device issue [Unknown]

NARRATIVE: CASE EVENT DATE: 20230511
